FAERS Safety Report 4493090-1 (Version None)
Quarter: 2004Q4

REPORT INFORMATION
  Report Type: 
  Country: None (occurrence: None)
  Receive Date: 20041101
  Receipt Date: 20041014
  Transmission Date: 20050328
  Serious: Yes (Other)
  Sender: FDA-Public Use
  Company Number: DSA_25215_2004

PATIENT
  Age: 48 Year
  Sex: Female

DRUGS (2)
  1. TEMESTA [Suspect]
     Dosage: 1 MG Q DAY PO
     Route: 048
     Dates: start: 19970101
  2. IMOVANE [Concomitant]

REACTIONS (1)
  - BLOOD PROLACTIN INCREASED [None]
